FAERS Safety Report 5943856-3 (Version None)
Quarter: 2008Q4

REPORT INFORMATION
  Report Type: 
  Country: None (occurrence: None)
  Receive Date: 20081106
  Receipt Date: 20081024
  Transmission Date: 20090506
  Serious: Yes (Death, Other)
  Sender: FDA-Public Use
  Company Number: CA-ELI_LILLY_AND_COMPANY-CA200810005943

PATIENT
  Age: 84 Year
  Sex: Male

DRUGS (10)
  1. FORTEO [Suspect]
     Indication: OSTEOPOROSIS
     Dosage: 20 UG, DAILY (1/D)
     Route: 058
     Dates: start: 20080130
  2. RABEPRAZOLE SODIUM [Concomitant]
     Dosage: 20 MG, UNK
  3. IRON [Concomitant]
     Dosage: 300 MG, UNK
  4. ARICEPT [Concomitant]
     Dosage: 10 MG, UNK
  5. PLAVIX [Concomitant]
     Dosage: 75 MG, UNK
  6. LIPITOR [Concomitant]
     Dosage: 40 MG, UNK
  7. AMIODARONE HCL [Concomitant]
     Dosage: 200 MG, UNK
  8. SPIRIVA [Concomitant]
     Dosage: 18 MG, UNK
  9. ADVAIR DISKUS 100/50 [Concomitant]
     Dosage: 250 MG, UNK
  10. RAMIPRIL [Concomitant]
     Dosage: 2.5 MG, UNK

REACTIONS (4)
  - DISEASE COMPLICATION [None]
  - OPEN WOUND [None]
  - PNEUMONIA ASPIRATION [None]
  - WOUND INFECTION [None]
